FAERS Safety Report 24052133 (Version 1)
Quarter: 2024Q3

REPORT INFORMATION
  Report Type: Spontaneous
  Country: CN (occurrence: None)
  Receive Date: 20240704
  Receipt Date: 20240704
  Transmission Date: 20241017
  Serious: Yes (Other)
  Sender: ASTRAZENECA
  Company Number: 2024A149996

PATIENT
  Age: 31605 Day
  Sex: Female
  Weight: 52 kg

DRUGS (2)
  1. BUDESONIDE [Suspect]
     Active Substance: BUDESONIDE
     Indication: Cough
     Route: 055
     Dates: start: 20240406, end: 20240407
  2. BUDESONIDE [Suspect]
     Active Substance: BUDESONIDE
     Indication: Dyspnoea
     Route: 055
     Dates: start: 20240406, end: 20240407

REACTIONS (6)
  - Dyspnoea [Recovered/Resolved]
  - Tachypnoea [Recovered/Resolved]
  - Discomfort [Recovered/Resolved]
  - Mental disorder [Recovered/Resolved]
  - Wheezing [Recovered/Resolved]
  - Rales [Recovered/Resolved]

NARRATIVE: CASE EVENT DATE: 20240407
